FAERS Safety Report 16158713 (Version 2)
Quarter: 2020Q3

REPORT INFORMATION
  Report Type: Spontaneous
  Country: US (occurrence: US)
  Receive Date: 20190404
  Receipt Date: 20190506
  Transmission Date: 20201104
  Serious: Yes (Hospitalization, Other)
  Sender: FDA-Public Use
  Company Number: US-AMGEN-USASP2019050408

PATIENT
  Age: 38 Year
  Sex: Female

DRUGS (20)
  1. EPOGEN [Suspect]
     Active Substance: ERYTHROPOIETIN
     Indication: SICKLE CELL ANAEMIA
     Dosage: UNK
     Route: 065
  2. OMEGA?3 FATTY ACIDS [Suspect]
     Active Substance: OMEGA-3 FATTY ACIDS
     Indication: SICKLE CELL ANAEMIA
     Route: 065
  3. VOXELOTOR. [Suspect]
     Active Substance: VOXELOTOR
     Dosage: 1500 MILLIGRAM, QD
     Route: 065
     Dates: start: 20180118, end: 20180125
  4. FOLIC ACID. [Concomitant]
     Active Substance: FOLIC ACID
     Dosage: 1 MILLIGRAM, QD
     Route: 048
  5. SODIUM BICARBONATE. [Concomitant]
     Active Substance: SODIUM BICARBONATE
     Dosage: 800 MILLIGRAM, TID
  6. MAGNESIUM [Suspect]
     Active Substance: MAGNESIUM
     Indication: SICKLE CELL ANAEMIA
     Route: 065
  7. SEVELAMER CARBONATE. [Concomitant]
     Active Substance: SEVELAMER CARBONATE
     Dosage: 800 MILLIGRAM, TID
     Route: 048
  8. EPOGEN [Suspect]
     Active Substance: ERYTHROPOIETIN
     Dosage: 15000 INTERNATIONAL UNIT THREE TIMES A WEEK
     Route: 065
     Dates: start: 20170724
  9. DECITABINE. [Suspect]
     Active Substance: DECITABINE
     Indication: SICKLE CELL ANAEMIA
     Route: 065
  10. AMLODIPINE [Concomitant]
     Active Substance: AMLODIPINE BESYLATE
     Dosage: 10 MILLIGRAM, QD
     Route: 048
  11. IRON [Concomitant]
     Active Substance: IRON
     Dosage: UNK
     Route: 042
     Dates: start: 20170629
  12. EPOGEN [Suspect]
     Active Substance: ERYTHROPOIETIN
     Dosage: 15000 INTERNATIONAL UNIT THREE TIMES A WEEK
     Route: 065
     Dates: start: 20170710, end: 20170717
  13. VOXELOTOR. [Suspect]
     Active Substance: VOXELOTOR
     Dosage: 1200 MILLIGRAM, QD
     Route: 065
     Dates: start: 20180201, end: 20180201
  14. ALLOPURINOL. [Concomitant]
     Active Substance: ALLOPURINOL
     Dosage: 100 MILLIGRAM, QD
  15. HYDROXYUREA. [Suspect]
     Active Substance: HYDROXYUREA
     Indication: SICKLE CELL ANAEMIA
     Dosage: UNK
     Route: 065
  16. FUROSEMIDE. [Concomitant]
     Active Substance: FUROSEMIDE
     Dosage: 40 MILLIGRAM, QD
     Route: 048
  17. VOXELOTOR. [Suspect]
     Active Substance: VOXELOTOR
     Indication: SICKLE CELL ANAEMIA
     Dosage: 1500 MILLIGRAM, QD
     Route: 065
     Dates: start: 20170717, end: 20171218
  18. VOXELOTOR. [Suspect]
     Active Substance: VOXELOTOR
     Dosage: 1800 MILLIGRAM, QD
     Route: 065
     Dates: start: 20180104, end: 20180111
  19. VOXELOTOR. [Suspect]
     Active Substance: VOXELOTOR
     Dosage: 900 MILLIGRAM, QD
     Route: 065
     Dates: start: 20180215, end: 20180215
  20. JADENU [Concomitant]
     Active Substance: DEFERASIROX
     Dosage: 720 MILLIGRAM, QD
     Route: 048

REACTIONS (18)
  - Pain in extremity [Unknown]
  - Diarrhoea [Unknown]
  - Constipation [Unknown]
  - Delayed haemolytic transfusion reaction [Unknown]
  - Multiple organ dysfunction syndrome [Unknown]
  - Cardiac failure [Unknown]
  - Headache [Unknown]
  - Nausea [Unknown]
  - Acute chest syndrome [Unknown]
  - Anaemia [Not Recovered/Not Resolved]
  - Vomiting [Unknown]
  - Liver disorder [Unknown]
  - Chills [Unknown]
  - Thrombocytosis [Unknown]
  - Off label use [Unknown]
  - Chest pain [Unknown]
  - Pyrexia [Unknown]
  - Pain [Unknown]

NARRATIVE: CASE EVENT DATE: 2003
